FAERS Safety Report 16413129 (Version 1)
Quarter: 2019Q2

REPORT INFORMATION
  Report Type: Spontaneous
  Country: KR (occurrence: KR)
  Receive Date: 20190611
  Receipt Date: 20190611
  Transmission Date: 20190711
  Serious: Yes (Hospitalization)
  Sender: FDA-Public Use
  Company Number: KR-SUN PHARMACEUTICAL INDUSTRIES LTD-2019RR-210091

PATIENT
  Age: 69 Year
  Sex: Female

DRUGS (8)
  1. CAFFEINE DEHYDRATE [Concomitant]
     Indication: HEADACHE
     Dosage: 30 MILLIGRAM, UNK
     Route: 065
  2. DIPHENHYDRAMINE. [Suspect]
     Active Substance: DIPHENHYDRAMINE
     Indication: INSOMNIA
     Dosage: 100-250 MG, ON A DAILY BASIS
     Route: 065
  3. ACETAMINOPHEN. [Concomitant]
     Active Substance: ACETAMINOPHEN
     Indication: HEADACHE
     Dosage: 200 MILLIGRAM, UNK
     Route: 065
  4. PANPYRIN [ACETAMINOPHEN\CAFFEINE\CHLORPHENIRAMINE\ETHENZAMIDE] [Suspect]
     Active Substance: ACETAMINOPHEN\CAFFEINE\CHLORPHENIRAMINE\ETHENZAMIDE
     Indication: HEADACHE
     Dosage: 2 BOTTLES, UNK
     Route: 065
  5. ZOLPIDEM [Suspect]
     Active Substance: ZOLPIDEM\ZOLPIDEM TARTRATE
     Indication: INSOMNIA
     Dosage: 50-60 MG DAILY
     Route: 065
  6. ETENZAMIDE [Concomitant]
     Indication: HEADACHE
     Dosage: 100 MILLIGRAM, UNK
     Route: 065
  7. ZOLPIDEM [Suspect]
     Active Substance: ZOLPIDEM\ZOLPIDEM TARTRATE
     Indication: INSOMNIA
     Dosage: 10 MILLIGRAM, DAILY
     Route: 065
  8. CHLORPHENIRAMINE. [Concomitant]
     Active Substance: CHLORPHENIRAMINE
     Indication: HEADACHE
     Dosage: 2 MILLIGRAM, UNK

REACTIONS (6)
  - Self-medication [Unknown]
  - Overdose [Unknown]
  - Fall [Unknown]
  - Somnambulism [Unknown]
  - Drug dependence [Unknown]
  - Confusional state [Unknown]
